FAERS Safety Report 10010795 (Version 1)
Quarter: 2014Q1

REPORT INFORMATION
  Report Type: Spontaneous
  Country: GB (occurrence: None)
  Receive Date: 20140311
  Receipt Date: 20140311
  Transmission Date: 20141002
  Serious: Yes (Other)
  Sender: FDA-Public Use
  Company Number: VAL_03021_2014

PATIENT
  Age: 16 Year
  Sex: Female

DRUGS (2)
  1. BROMOCRIPTINE [Suspect]
     Indication: PROLACTINOMA
     Dosage: (10 MG 4X/WEEK), (GRADUALLY WITHDRAWN OVER A PERIOD OF EIGHT MONTHS AFTER SURGERY)?
  2. BROMOCRIPTINE [Suspect]
     Indication: HYPERPROLACTINAEMIA
     Dosage: (10 MG 4X/WEEK), (GRADUALLY WITHDRAWN OVER A PERIOD OF EIGHT MONTHS AFTER SURGERY)?

REACTIONS (2)
  - Pathological gambling [None]
  - Impulse-control disorder [None]
